FAERS Safety Report 21849200 (Version 1)
Quarter: 2023Q1

REPORT INFORMATION
  Report Type: Spontaneous
  Country: JP (occurrence: JP)
  Receive Date: 20230111
  Receipt Date: 20230111
  Transmission Date: 20230418
  Serious: No
  Sender: FDA-Public Use
  Company Number: JP-PFIZER INC-202300006975

PATIENT
  Age: 73 Year
  Sex: Female

DRUGS (2)
  1. PAXLOVID [Suspect]
     Active Substance: NIRMATRELVIR\RITONAVIR
     Indication: COVID-19 treatment
     Dosage: EITHER 2 NIRMATRELVIR OR 2 RITONAVIR TABLETS
     Route: 048
  2. CALONAL [Concomitant]
     Active Substance: ACETAMINOPHEN
     Indication: Pyrexia
     Dosage: 2 TABLETS, AS NEEDED
     Route: 048

REACTIONS (1)
  - Incorrect dose administered [Unknown]
